FAERS Safety Report 4584875-1 (Version None)
Quarter: 2005Q1

REPORT INFORMATION
  Report Type: 
  Country: None (occurrence: None)
  Receive Date: 20050217
  Receipt Date: 20041104
  Transmission Date: 20050727
  Serious: No
  Sender: FDA-Public Use
  Company Number: US-GLAXOSMITHKLINE-A0532716A

PATIENT
  Age: 65 Year
  Sex: Female

DRUGS (11)
  1. WELLBUTRIN XL [Suspect]
     Indication: DEPRESSION
     Dosage: 300MG PER DAY
     Route: 048
     Dates: start: 20041021
  2. PREDNISONE [Concomitant]
  3. COUMADIN [Concomitant]
  4. CODEINE [Concomitant]
  5. METHOTREXATE [Concomitant]
  6. FUROSEMIDE [Concomitant]
  7. CELEBREX [Concomitant]
  8. VITAMIN COMPLEX [Concomitant]
  9. FOLIC ACID [Concomitant]
  10. VIT D [Concomitant]
  11. VIT C [Concomitant]

REACTIONS (1)
  - DIPLOPIA [None]
